FAERS Safety Report 6314286-X (Version None)
Quarter: 2009Q3

REPORT INFORMATION
  Report Type: 
  Country: None (occurrence: None)
  Receive Date: 20090817
  Receipt Date: 20090804
  Transmission Date: 20100115
  Serious: Yes (Death, Hospitalization, Other)
  Sender: FDA-Public Use
  Company Number: RENA-1000481

PATIENT
  Age: 64 Year
  Sex: Male
  Weight: 60 kg

DRUGS (8)
  1. RENAGEL [Suspect]
     Indication: HYPERPHOSPHATAEMIA
     Dosage: 0.25 G, QD, ORAL; 0.75 G, TID, ORAL
     Route: 048
     Dates: start: 20090301, end: 20090301
  2. RENAGEL [Suspect]
     Indication: HYPERPHOSPHATAEMIA
     Dosage: 0.25 G, QD, ORAL; 0.75 G, TID, ORAL
     Route: 048
     Dates: start: 20090301, end: 20090501
  3. BAKTAR (SULFAMETHOXAZOLE, TRIMETHOPRIM) TABLET [Concomitant]
  4. LASIX [Concomitant]
  5. CALCIUM CARBONATE (CALCIUM CARBONATE) TABLET [Concomitant]
  6. FOSMICIN (FOSFOMYCIN CALCIUM) TABLET [Concomitant]
  7. BIOFERMIN R (STREPTOCOCCUS FAECALIS) TABLET [Concomitant]
  8. MAXIPIME [Concomitant]

REACTIONS (7)
  - ALANINE AMINOTRANSFERASE INCREASED [None]
  - ASPARTATE AMINOTRANSFERASE INCREASED [None]
  - CARDIO-RESPIRATORY ARREST [None]
  - CONDITION AGGRAVATED [None]
  - HEPATIC FUNCTION ABNORMAL [None]
  - HEPATOMEGALY [None]
  - MULTIPLE MYELOMA [None]
